FAERS Safety Report 9772354 (Version 3)
Quarter: 2014Q1

REPORT INFORMATION
  Report Type: Report from Study
  Country: US (occurrence: US)
  Receive Date: 20131219
  Receipt Date: 20140227
  Transmission Date: 20141002
  Serious: Yes (Hospitalization, Other)
  Sender: FDA-Public Use
  Company Number: US-CELGENEUS-163-21880-13121734

PATIENT
  Age: 62 Year
  Sex: Female
  Weight: 80.36 kg

DRUGS (5)
  1. REVLIMID [Suspect]
     Indication: CHRONIC LYMPHOCYTIC LEUKAEMIA
     Dosage: 10 MILLIGRAM
     Route: 048
     Dates: start: 20130828, end: 20130830
  2. REVLIMID [Suspect]
     Dosage: 2.5 MG TO 5 TO 7.5 TO 10 MG
     Route: 048
     Dates: start: 20131011, end: 20131120
  3. COUMADIN [Suspect]
     Indication: PULMONARY EMBOLISM
     Route: 065
  4. PREDNISONE [Concomitant]
     Indication: TENDERNESS
     Route: 065
  5. PREDNISONE [Concomitant]
     Indication: PAIN

REACTIONS (5)
  - Hypoprothrombinaemia [Unknown]
  - Tumour flare [Unknown]
  - Tumour flare [Unknown]
  - Pseudohyperkalaemia [Unknown]
  - Leukocytosis [Unknown]
